FAERS Safety Report 18024173 (Version 1)
Quarter: 2020Q3

REPORT INFORMATION
  Report Type: Spontaneous
  Country: US (occurrence: US)
  Receive Date: 20200715
  Receipt Date: 20200715
  Transmission Date: 20201103
  Serious: No
  Sender: FDA-Public Use
  Company Number: US-BAYER-2020-142506

PATIENT
  Sex: Female

DRUGS (1)
  1. KYLEENA [Suspect]
     Active Substance: LEVONORGESTREL
     Dosage: 17.5 ?G PER DAY,  CONTINUOUSLY
     Route: 015
     Dates: start: 201711

REACTIONS (3)
  - Vaginal haemorrhage [None]
  - Device expulsion [None]
  - Menstruation irregular [None]
